FAERS Safety Report 5495244-4 (Version None)
Quarter: 2007Q4

REPORT INFORMATION
  Report Type: 
  Country: None (occurrence: None)
  Receive Date: 20071023
  Receipt Date: 20071011
  Transmission Date: 20080405
  Serious: Yes (Hospitalization)
  Sender: FDA-Public Use
  Company Number: 2007-GWUS-0520

PATIENT
  Age: 49 Year
  Sex: Male
  Weight: 95.2554 kg

DRUGS (1)
  1. ALDARA [Suspect]
     Indication: BASAL CELL CARCINOMA
     Dosage: APPLICATION - 5 TIMES WEEKLY - TOPICAL
     Route: 061
     Dates: start: 20070201, end: 20070101

REACTIONS (7)
  - INNER EAR INFLAMMATION [None]
  - INSOMNIA [None]
  - MUCOSAL INFLAMMATION [None]
  - MUSCULAR WEAKNESS [None]
  - OTOSALPINGITIS [None]
  - PARKINSON'S DISEASE [None]
  - TINNITUS [None]
